FAERS Safety Report 7292255-3 (Version None)
Quarter: 2011Q1

REPORT INFORMATION
  Report Type: 
  Country: None (occurrence: None)
  Receive Date: 20110215
  Receipt Date: 20110209
  Transmission Date: 20110831
  Serious: Yes (Hospitalization)
  Sender: FDA-Public Use
  Company Number: GB-TEVA-266864ISR

PATIENT
  Age: 21 Year
  Sex: Female

DRUGS (2)
  1. TRAMADOL [Suspect]
  2. TRAMADOL [Suspect]
     Indication: ABDOMINAL PAIN

REACTIONS (1)
  - SECONDARY ADRENOCORTICAL INSUFFICIENCY [None]
